FAERS Safety Report 7459198-3 (Version None)
Quarter: 2011Q2

REPORT INFORMATION
  Report Type: 
  Country: None (occurrence: None)
  Receive Date: 20110505
  Receipt Date: 20110426
  Transmission Date: 20111010
  Serious: No
  Sender: FDA-Public Use
  Company Number: US-BIOGENIDEC-2011BI015582

PATIENT
  Age: 22 Year
  Sex: Male

DRUGS (1)
  1. AVONEX [Suspect]
     Indication: MULTIPLE SCLEROSIS
     Route: 030
     Dates: start: 20100315

REACTIONS (5)
  - DEHYDRATION [None]
  - NAUSEA [None]
  - ASTHENIA [None]
  - HYPOAESTHESIA [None]
  - DRY MOUTH [None]
